FAERS Safety Report 9575223 (Version 1)
Quarter: 2013Q4

REPORT INFORMATION
  Report Type: Spontaneous
  Country: CO (occurrence: CO)
  Receive Date: 20131001
  Receipt Date: 20131001
  Transmission Date: 20140711
  Serious: Yes (Death)
  Sender: FDA-Public Use
  Company Number: CO-GLAXOSMITHKLINE-A1043347A

PATIENT
  Age: 4 Year
  Sex: Male
  Weight: 25 kg

DRUGS (5)
  1. LAMICTAL [Suspect]
     Indication: LENNOX-GASTAUT SYNDROME
     Dosage: 125MG PER DAY
     Route: 065
     Dates: start: 2011
  2. METOCLOPRAMIDE [Suspect]
     Indication: GASTRITIS
  3. PIPERACILLIN + TAZOBACTAM [Suspect]
     Indication: SEPSIS
  4. PHENOBARBITAL [Suspect]
     Indication: LENNOX-GASTAUT SYNDROME
     Dosage: 125MG PER DAY
     Dates: start: 2009
  5. CLOBAZAM [Suspect]
     Indication: LENNOX-GASTAUT SYNDROME
     Dosage: 32.5MG PER DAY

REACTIONS (4)
  - Sepsis [Fatal]
  - Lennox-Gastaut syndrome [Unknown]
  - Condition aggravated [Unknown]
  - Dermatitis exfoliative [Unknown]
